FAERS Safety Report 12366622 (Version 2)
Quarter: 2016Q3

REPORT INFORMATION
  Report Type: Spontaneous
  Country: US (occurrence: US)
  Receive Date: 20160513
  Receipt Date: 20160728
  Transmission Date: 20161109
  Serious: Yes (Hospitalization)
  Sender: FDA-Public Use
  Company Number: US-PFIZER INC-2016256615

PATIENT
  Age: 57 Year
  Sex: Female

DRUGS (2)
  1. PROPANOLOL HCL [Suspect]
     Active Substance: PROPRANOLOL HYDROCHLORIDE
     Indication: CEREBRAL HAEMANGIOMA
     Dosage: 20 MG, 3X/DAY
     Dates: start: 201304
  2. PROPANOLOL HCL [Suspect]
     Active Substance: PROPRANOLOL HYDROCHLORIDE
     Dosage: 20 MG, 2X/DAY
     Dates: end: 20141001

REACTIONS (5)
  - Drug intolerance [Unknown]
  - Product use issue [Unknown]
  - Fall [Unknown]
  - Exercise tolerance decreased [Recovering/Resolving]
  - Dyspnoea [Recovering/Resolving]

NARRATIVE: CASE EVENT DATE: 2013
